FAERS Safety Report 23718995 (Version 1)
Quarter: 2024Q2

REPORT INFORMATION
  Report Type: Spontaneous
  Country: US (occurrence: None)
  Receive Date: 20240407
  Receipt Date: 20240407
  Transmission Date: 20240716
  Serious: No
  Sender: FDA-Public Use
  Company Number: None

PATIENT
  Age: 47 Year
  Sex: Male
  Weight: 85.5 kg

DRUGS (3)
  1. VENLAFAXINE HCL [Suspect]
     Active Substance: VENLAFAXINE HYDROCHLORIDE
     Indication: Drug therapy
     Dosage: OTHER FREQUENCY : ONCE DAILY W/MEAL;?
     Route: 048
     Dates: start: 20231214, end: 20240306
  2. IRON [Concomitant]
     Active Substance: IRON
  3. VITAMIN D [Concomitant]
     Active Substance: VITAMIN D NOS

REACTIONS (9)
  - Product communication issue [None]
  - Product prescribing error [None]
  - Muscle twitching [None]
  - Seizure [None]
  - Joint lock [None]
  - Paralysis [None]
  - Neck pain [None]
  - Dysphagia [None]
  - Sleep apnoea syndrome [None]

NARRATIVE: CASE EVENT DATE: 20240306
